FAERS Safety Report 14073283 (Version 1)
Quarter: 2017Q4

REPORT INFORMATION
  Report Type: Spontaneous
  Country: FR (occurrence: FR)
  Receive Date: 20171011
  Receipt Date: 20171011
  Transmission Date: 20180321
  Serious: Yes (Hospitalization)
  Sender: FDA-Public Use
  Company Number: FR-ADIENNEP-2017AD000272

PATIENT
  Age: 60 Year
  Sex: Female

DRUGS (4)
  1. IXPRIM [Concomitant]
     Active Substance: ACETAMINOPHEN\TRAMADOL HYDROCHLORIDE
  2. TRIATEC [Concomitant]
     Active Substance: RAMIPRIL
  3. TEPADINA [Suspect]
     Active Substance: THIOTEPA
     Dosage: 5 MG/KG EVERY 12 HOUR(S)
     Route: 042
     Dates: start: 20170808, end: 20170809
  4. CARMUSTINE [Suspect]
     Active Substance: CARMUSTINE
     Indication: B-CELL LYMPHOMA
     Dosage: 400 MG/M2 DAILY
     Route: 042
     Dates: start: 20170807, end: 20170807

REACTIONS (3)
  - Confusional state [Recovering/Resolving]
  - Speech disorder [Recovering/Resolving]
  - Coma [Recovering/Resolving]

NARRATIVE: CASE EVENT DATE: 20170818
